FAERS Safety Report 9505778 (Version 1)
Quarter: 2013Q1

REPORT INFORMATION
  Report Type: Spontaneous
  Country: FR (occurrence: None)
  Receive Date: 20130225
  Receipt Date: 20130225
  Transmission Date: 20140127
  Serious: Yes (Death, Hospitalization)
  Sender: FDA-Public Use
  Company Number: 2012-109

PATIENT
  Age: 63 Year
  Sex: Male
  Weight: 79 kg

DRUGS (8)
  1. PRIALT (ZICONOTIDE) INTRATHECAL INFUSION [Suspect]
     Indication: PAIN
     Dosage: ONCE AN HOUR
     Route: 037
     Dates: start: 20110526, end: 20110616
  2. MORPHINE SULFATE [Suspect]
     Dosage: ONCE AND HOUR
     Route: 037
     Dates: start: 20110526, end: 20110616
  3. NAROPEINE (ROPIVACAINE HYDROCHLORIDE) INJECTION [Suspect]
     Dosage: ONCE AN HR
     Route: 037
     Dates: start: 20110526, end: 20110608
  4. CLONIDINE HCL (CLONIDINE HYDROCHLORIDE) INJECTION [Suspect]
     Dosage: ONCE AN HR
     Route: 037
     Dates: start: 20110526, end: 20110608
  5. LYRICA (PREGAMBLIN) [Concomitant]
  6. ENANTONE (LEUPRORELIN) [Concomitant]
  7. TRAVATAN (TRAVOPROST) [Concomitant]
  8. DIGAOL (TIMOLOL MALEATE) [Concomitant]

REACTIONS (4)
  - Confusional state [None]
  - General physical health deterioration [None]
  - Obstructive airways disorder [None]
  - Pain [None]
